FAERS Safety Report 5105802-4 (Version None)
Quarter: 2006Q3

REPORT INFORMATION
  Report Type: 
  Country: None (occurrence: None)
  Receive Date: 20060915
  Receipt Date: 20060613
  Transmission Date: 20061208
  Serious: Yes (Death)
  Sender: FDA-Public Use
  Company Number: GB-NOVOPROD-254060

PATIENT
  Age: 36 Year
  Sex: Female

DRUGS (3)
  1. NOVOSEVEN [Suspect]
     Indication: HAEMORRHAGE
  2. PLATELETS [Concomitant]
  3. FRESH FROZEN PLASMA [Concomitant]

REACTIONS (1)
  - DEATH [None]
